FAERS Safety Report 25124637 (Version 1)
Quarter: 2025Q1

REPORT INFORMATION
  Report Type: Spontaneous
  Country: IN (occurrence: IN)
  Receive Date: 20250326
  Receipt Date: 20250326
  Transmission Date: 20250409
  Serious: Yes (Hospitalization, Other)
  Sender: Vantive US Healthcare
  Company Number: IN-VANTIVE-2025VAN001430

PATIENT
  Age: 79 Year
  Sex: Female

DRUGS (1)
  1. DIANEAL PD-2 PERITONEAL DIALYSIS SOLUTION WITH DEXTROSE [Suspect]
     Active Substance: CALCIUM CHLORIDE\DEXTROSE\MAGNESIUM CHLORIDE\SODIUM CHLORIDE\SODIUM LACTATE
     Indication: Renal failure
     Route: 033

REACTIONS (2)
  - Loss of consciousness [Unknown]
  - Hyponatraemia [Unknown]
